FAERS Safety Report 7038549-8 (Version None)
Quarter: 2010Q4

REPORT INFORMATION
  Report Type: 
  Country: None (occurrence: None)
  Receive Date: 20101011
  Receipt Date: 20101004
  Transmission Date: 20110411
  Serious: Yes (Other)
  Sender: FDA-Public Use
  Company Number: US-PFIZER INC-2010126373

PATIENT
  Sex: Female
  Weight: 74.3 kg

DRUGS (7)
  1. LIPITOR [Suspect]
     Indication: ARTERIAL OCCLUSIVE DISEASE
     Dosage: 80 MG, DAILY
     Route: 048
     Dates: start: 20100201
  2. LIPITOR [Suspect]
     Indication: CARDIAC OPERATION
  3. LIPITOR [Suspect]
     Indication: STENT PLACEMENT
  4. ATENOLOL [Concomitant]
     Dosage: UNK
  5. ACETYLSALICYLIC ACID [Concomitant]
     Dosage: UNK
  6. PLAVIX [Concomitant]
     Dosage: UNK
  7. HYDROCHLOROTHIAZIDE [Concomitant]
     Dosage: UNK

REACTIONS (6)
  - CONTUSION [None]
  - GRIP STRENGTH DECREASED [None]
  - HYPOKINESIA [None]
  - MUSCULAR WEAKNESS [None]
  - MYALGIA [None]
  - PAIN [None]
